FAERS Safety Report 16785550 (Version 3)
Quarter: 2019Q4

REPORT INFORMATION
  Report Type: Spontaneous
  Country: US (occurrence: US)
  Receive Date: 20190909
  Receipt Date: 20191119
  Transmission Date: 20200122
  Serious: No
  Sender: FDA-Public Use
  Company Number: US-PFIZER INC-2019341759

PATIENT
  Age: 91 Year
  Sex: Female
  Weight: 47.62 kg

DRUGS (4)
  1. AMLODIPINE BESILATE [Suspect]
     Active Substance: AMLODIPINE BESYLATE
     Indication: BLOOD CHOLESTEROL INCREASED
  2. ATORVASTATIN CALCIUM. [Suspect]
     Active Substance: ATORVASTATIN CALCIUM
     Indication: ARTERIAL DISORDER
     Dosage: 10 MG, UNK ( 10MG 3 TIMES WEEKLY)
     Dates: start: 1996
  3. AMLODIPINE BESILATE [Suspect]
     Active Substance: AMLODIPINE BESYLATE
     Indication: ARTERIAL DISORDER
     Dosage: 10 MG, 1X/DAY
     Dates: start: 1999
  4. ATORVASTATIN CALCIUM. [Suspect]
     Active Substance: ATORVASTATIN CALCIUM
     Indication: BLOOD CHOLESTEROL INCREASED

REACTIONS (4)
  - Frustration tolerance decreased [Unknown]
  - Aversion [Unknown]
  - Off label use [Unknown]
  - Product use in unapproved indication [Unknown]
